FAERS Safety Report 5720249-5 (Version None)
Quarter: 2008Q2

REPORT INFORMATION
  Report Type: 
  Country: None (occurrence: None)
  Receive Date: 20080423
  Receipt Date: 20070808
  Transmission Date: 20081010
  Serious: Yes (Other)
  Sender: FDA-Public Use
  Company Number: 243339

PATIENT
  Age: 60 Year
  Sex: Female
  Weight: 88.9 kg

DRUGS (4)
  1. AVASTIN [Suspect]
     Indication: COLON CANCER
     Dosage: Q2W, INTRAVENOUS
     Route: 042
     Dates: start: 20070212
  2. CAMPTOSAR [Concomitant]
  3. LEUCOVORIN CALCIUM [Concomitant]
  4. FLUOROURACIL [Concomitant]

REACTIONS (2)
  - PORTAL VEIN THROMBOSIS [None]
  - SPLENIC VEIN THROMBOSIS [None]
